FAERS Safety Report 21274636 (Version 1)
Quarter: 2022Q3

REPORT INFORMATION
  Report Type: Spontaneous
  Country: US (occurrence: US)
  Receive Date: 20220831
  Receipt Date: 20220831
  Transmission Date: 20221027
  Serious: Yes (Other)
  Sender: FDA-Public Use
  Company Number: US-AMERICAN REGENT INC-2022001824

PATIENT
  Sex: Female
  Weight: 90.703 kg

DRUGS (13)
  1. FERRIC CARBOXYMALTOSE [Suspect]
     Active Substance: FERRIC CARBOXYMALTOSE
     Indication: Iron deficiency anaemia
     Dosage: 750 MILLIGRAM IN NS 500 ML, SINGLE
     Route: 042
     Dates: start: 20150306, end: 20150306
  2. FERRIC CARBOXYMALTOSE [Suspect]
     Active Substance: FERRIC CARBOXYMALTOSE
     Dosage: 750 MILLIGRAM IN NS 500 ML, SINGLE
     Route: 042
     Dates: start: 20150313, end: 20150313
  3. FERRIC CARBOXYMALTOSE [Suspect]
     Active Substance: FERRIC CARBOXYMALTOSE
     Dosage: 750 MILLIGRAM IN NS 500 ML, SINGLE
     Route: 042
     Dates: start: 20161010, end: 20161010
  4. FERRIC CARBOXYMALTOSE [Suspect]
     Active Substance: FERRIC CARBOXYMALTOSE
     Dosage: 750 MILLIGRAM IN NS 500 ML, SINGLE
     Route: 042
     Dates: start: 20161017, end: 20161017
  5. FERRIC CARBOXYMALTOSE [Suspect]
     Active Substance: FERRIC CARBOXYMALTOSE
     Dosage: 750 MILLIGRAM IN NS 500 ML, SINGLE
     Route: 042
     Dates: start: 20171025, end: 20171025
  6. FERRIC CARBOXYMALTOSE [Suspect]
     Active Substance: FERRIC CARBOXYMALTOSE
     Dosage: 750 MILLIGRAM IN NS 500 ML, SINGLE
     Route: 042
     Dates: start: 20171101, end: 20171101
  7. FERRIC CARBOXYMALTOSE [Suspect]
     Active Substance: FERRIC CARBOXYMALTOSE
     Dosage: 750 MILLIGRAM IN NS 500 ML, SINGLE
     Route: 042
     Dates: start: 20180907, end: 20180907
  8. FERRIC CARBOXYMALTOSE [Suspect]
     Active Substance: FERRIC CARBOXYMALTOSE
     Dosage: 750 MILLIGRAM IN NS 500 ML, SINGLE
     Route: 042
     Dates: start: 20180917, end: 20180917
  9. CYANOCOBALAMIN [Concomitant]
     Active Substance: CYANOCOBALAMIN
     Indication: Vitamin B12 deficiency
     Dosage: 1000 MICROGRAM, SINGLE
     Route: 030
     Dates: start: 20150306, end: 20150306
  10. CYANOCOBALAMIN [Concomitant]
     Active Substance: CYANOCOBALAMIN
     Dosage: 1000 MICROGRAM, SINGLE
     Route: 030
     Dates: start: 20171101, end: 20171101
  11. CYANOCOBALAMIN [Concomitant]
     Active Substance: CYANOCOBALAMIN
     Dosage: 1000 MICROGRAM, SINGLE
     Route: 030
     Dates: start: 20180907, end: 20180907
  12. CYANOCOBALAMIN [Concomitant]
     Active Substance: CYANOCOBALAMIN
     Dosage: 1000 MICROGRAM, SINGLE
     Route: 030
     Dates: start: 20180917, end: 20180917
  13. TOPAMAX [Concomitant]
     Active Substance: TOPIRAMATE
     Indication: Migraine
     Dosage: UNK
     Route: 048

REACTIONS (1)
  - Hypophosphataemia [Unknown]
